APPROVED DRUG PRODUCT: TOPIRAMATE
Active Ingredient: TOPIRAMATE
Strength: 25MG
Dosage Form/Route: TABLET;ORAL
Application: A078499 | Product #001
Applicant: AIPING PHARMACEUTICAL INC
Approved: Jan 7, 2010 | RLD: No | RS: No | Type: DISCN